FAERS Safety Report 5806905-9 (Version None)
Quarter: 2008Q3

REPORT INFORMATION
  Report Type: 
  Country: None (occurrence: None)
  Receive Date: 20080711
  Receipt Date: 20080629
  Transmission Date: 20090109
  Serious: Yes (Other)
  Sender: FDA-Public Use
  Company Number: HQWYE529409JUN03

PATIENT
  Age: 8 Year
  Sex: Female

DRUGS (3)
  1. MYLOTARG [Suspect]
     Indication: ACUTE MYELOID LEUKAEMIA
     Route: 065
  2. MYLOTARG [Suspect]
     Route: 065
  3. HEPARIN [Concomitant]
     Indication: PROPHYLAXIS
     Dosage: 100 UNITS/KG PER DAY
     Route: 042

REACTIONS (2)
  - CHILLS [None]
  - PYREXIA [None]
